FAERS Safety Report 25723945 (Version 1)
Quarter: 2025Q3

REPORT INFORMATION
  Report Type: Spontaneous
  Country: US (occurrence: US)
  Receive Date: 20250825
  Receipt Date: 20250825
  Transmission Date: 20251021
  Serious: No
  Sender: ALEXION PHARMACEUTICALS
  Company Number: US-AstraZeneca-CH-00934863A

PATIENT
  Sex: Female

DRUGS (1)
  1. AIRSUPRA [Suspect]
     Active Substance: ALBUTEROL SULFATE\BUDESONIDE
     Indication: Asthma
     Route: 065

REACTIONS (5)
  - Dyspnoea [Unknown]
  - Nausea [Unknown]
  - Malaise [Unknown]
  - Hyperventilation [Unknown]
  - Dysphonia [Unknown]
